FAERS Safety Report 25415613 (Version 6)
Quarter: 2025Q4

REPORT INFORMATION
  Report Type: Spontaneous
  Country: JP (occurrence: JP)
  Receive Date: 20250610
  Receipt Date: 20251113
  Transmission Date: 20260117
  Serious: Yes (Hospitalization, Other)
  Sender: ALEXION PHARMACEUTICALS
  Company Number: JP-ASTRAZENECA-250054423_012620_P_1

PATIENT
  Age: 63 Year
  Sex: Female
  Weight: 47 kg

DRUGS (19)
  1. TRUQAP [Suspect]
     Active Substance: CAPIVASERTIB
     Indication: Breast cancer
     Dosage: 400 MG X 2, ON A 4-DAY-ON, 3-DAY-OFF SCHEDULE WAS REPEATED AS 1 CYCLE
     Dates: start: 20250116, end: 20250406
  2. TRUQAP [Suspect]
     Active Substance: CAPIVASERTIB
     Dosage: UNK
     Dates: start: 20250403, end: 20250406
  3. TRUQAP [Suspect]
     Active Substance: CAPIVASERTIB
     Dosage: UNK
     Dates: start: 20250411, end: 20250414
  4. FASLODEX [Suspect]
     Active Substance: FULVESTRANT
     Indication: Breast cancer
     Dosage: 500 MILLIGRAM, QD
     Dates: start: 20250116
  5. FASLODEX [Suspect]
     Active Substance: FULVESTRANT
  6. DAPAGLIFLOZIN [Suspect]
     Active Substance: DAPAGLIFLOZIN
     Indication: Diabetes mellitus
     Dosage: UNK
     Dates: start: 20250406, end: 20250414
  7. REBAMIPIDE [Concomitant]
     Active Substance: REBAMIPIDE
     Dosage: DOSE UNKNOWN
  8. PYRIDOXAL [Concomitant]
     Active Substance: PYRIDOXAL
     Dosage: DOSE UNKNOWN
  9. LYRICA [Concomitant]
     Active Substance: PREGABALIN
     Dosage: DOSE UNKNOWN
  10. ASCORBIC ACID\VITAMINS [Concomitant]
     Active Substance: ASCORBIC ACID\VITAMINS
     Dosage: DOSE UNKNOWN
  11. LASIX [Concomitant]
     Active Substance: FUROSEMIDE
     Dosage: DOSE UNKNOWN
  12. Glycyron [Concomitant]
     Dosage: DOSE UNKNOWN
  13. URSO [Concomitant]
     Active Substance: URSODIOL
     Dosage: DOSE UNKNOWN
  14. METGLUCO [Concomitant]
     Active Substance: METFORMIN HYDROCHLORIDE
     Dosage: DOSE UNKNOWN
  15. TRESIBA [Concomitant]
     Active Substance: INSULIN DEGLUDEC
     Dosage: DOSE UNKNOWN
  16. TRANEXAMIC ACID [Concomitant]
     Active Substance: TRANEXAMIC ACID
     Dosage: DOSE UNKNOWN
  17. SENNOSIDES [Concomitant]
     Active Substance: SENNOSIDES
     Dosage: DOSE UNKNOWN
  18. Lopemin [Concomitant]
     Dosage: DOSE UNKNOWN
  19. MOUNJARO [Concomitant]
     Active Substance: TIRZEPATIDE

REACTIONS (2)
  - Diabetes mellitus [Recovering/Resolving]
  - Drug ineffective [Unknown]

NARRATIVE: CASE EVENT DATE: 20250213
